FAERS Safety Report 23582718 (Version 1)
Quarter: 2024Q1

REPORT INFORMATION
  Report Type: Spontaneous
  Country: US (occurrence: US)
  Receive Date: 20240229
  Receipt Date: 20240229
  Transmission Date: 20240410
  Serious: Yes (Other)
  Sender: FDA-Public Use
  Company Number: US-STRIDES ARCOLAB LIMITED-2023SP018444

PATIENT
  Age: 31 Year
  Sex: Female

DRUGS (18)
  1. CETIRIZINE [Suspect]
     Active Substance: CETIRIZINE HYDROCHLORIDE
     Indication: Chronic spontaneous urticaria
     Dosage: UNK (PATIENT WAS MANAGED WITH DOUBLE THE STANDARD DOSE)
     Route: 065
  2. CETIRIZINE [Suspect]
     Active Substance: CETIRIZINE HYDROCHLORIDE
     Indication: Hereditary angioedema
  3. MONTELUKAST [Suspect]
     Active Substance: MONTELUKAST SODIUM
     Indication: Hereditary angioedema
     Dosage: 10 MILLIGRAM, BID
     Route: 065
  4. MONTELUKAST [Suspect]
     Active Substance: MONTELUKAST SODIUM
     Indication: Chronic spontaneous urticaria
  5. LORATADINE [Suspect]
     Active Substance: LORATADINE
     Indication: Hereditary angioedema
     Dosage: UNK (PATIENT WAS MANAGED WITH DOUBLE THE STANDARD DOSE)
     Route: 065
  6. LORATADINE [Suspect]
     Active Substance: LORATADINE
     Indication: Chronic spontaneous urticaria
  7. LEVOCETIRIZINE [Suspect]
     Active Substance: LEVOCETIRIZINE
     Indication: Hereditary angioedema
     Dosage: UNK (THE PATIENT WAS MANAGED WITH DOUBLE THE STANDARD DOSE)
     Route: 065
  8. LEVOCETIRIZINE [Suspect]
     Active Substance: LEVOCETIRIZINE
     Indication: Chronic spontaneous urticaria
  9. FEXOFENADINE [Suspect]
     Active Substance: FEXOFENADINE HYDROCHLORIDE
     Indication: Hereditary angioedema
     Dosage: UNK (THE PATIENT WAS MANAGED WITH DOUBLE THE STANDARD DOSE)
     Route: 065
  10. FEXOFENADINE [Suspect]
     Active Substance: FEXOFENADINE HYDROCHLORIDE
     Indication: Chronic spontaneous urticaria
  11. DESLORATADINE [Suspect]
     Active Substance: DESLORATADINE
     Indication: Hereditary angioedema
     Dosage: UNK (THE PATIENT WAS MANAGED WITH DOUBLE THE STANDARD DOSE)
     Route: 065
  12. DESLORATADINE [Suspect]
     Active Substance: DESLORATADINE
     Indication: Chronic spontaneous urticaria
  13. OMALIZUMAB [Suspect]
     Active Substance: OMALIZUMAB
     Indication: Hereditary angioedema
     Dosage: UNK
     Route: 065
  14. OMALIZUMAB [Suspect]
     Active Substance: OMALIZUMAB
     Indication: Chronic spontaneous urticaria
  15. DIPHENHYDRAMINE [Concomitant]
     Active Substance: DIPHENHYDRAMINE
     Indication: Urticaria
     Dosage: UNK
     Route: 065
  16. DIPHENHYDRAMINE [Concomitant]
     Active Substance: DIPHENHYDRAMINE
     Indication: Angioedema
  17. FAMOTIDINE [Concomitant]
     Active Substance: FAMOTIDINE
     Indication: Urticaria
     Dosage: UNK
     Route: 065
  18. FAMOTIDINE [Concomitant]
     Active Substance: FAMOTIDINE
     Indication: Angioedema

REACTIONS (2)
  - Therapy partial responder [Unknown]
  - Off label use [Unknown]
